FAERS Safety Report 15868315 (Version 6)
Quarter: 2019Q2

REPORT INFORMATION
  Report Type: Spontaneous
  Country: JP (occurrence: JP)
  Receive Date: 20190125
  Receipt Date: 20190604
  Transmission Date: 20190711
  Serious: Yes (Death, Hospitalization, Other)
  Sender: FDA-Public Use
  Company Number: JP-PFIZER INC-2019029452

PATIENT
  Age: 65 Year
  Sex: Male
  Weight: 42.8 kg

DRUGS (6)
  1. FEBURIC [Concomitant]
     Active Substance: FEBUXOSTAT
     Dosage: 20, UNK
  2. LORBRENA [Suspect]
     Active Substance: LORLATINIB
     Indication: LUNG ADENOCARCINOMA
     Dosage: 100 MG, 1X/DAY
     Route: 048
     Dates: start: 20181218, end: 20190107
  3. E KEPPRA [Concomitant]
     Active Substance: LEVETIRACETAM
     Dosage: 500 UNK, UNK
  4. ZYPREXA [Concomitant]
     Active Substance: OLANZAPINE
     Dosage: 2.5 UNK, UNK
  5. NAIXAN [Concomitant]
     Active Substance: NAPROXEN SODIUM
     Dosage: 100, UNK
  6. LANSOPRAZOLE. [Concomitant]
     Active Substance: LANSOPRAZOLE
     Dosage: 15, UNK

REACTIONS (7)
  - Electrocardiogram QT prolonged [Recovering/Resolving]
  - Electrolyte imbalance [Unknown]
  - Hyperammonaemia [Unknown]
  - Ventricular tachycardia [Recovered/Resolved]
  - Seizure [Recovering/Resolving]
  - Dehydration [Unknown]
  - Neoplasm progression [Fatal]

NARRATIVE: CASE EVENT DATE: 20190107
